FAERS Safety Report 15330367 (Version 2)
Quarter: 2018Q3

REPORT INFORMATION
  Report Type: Spontaneous
  Country: DE (occurrence: DE)
  Receive Date: 20180829
  Receipt Date: 20180926
  Transmission Date: 20181010
  Serious: Yes (Congenital Anomaly, Other)
  Sender: FDA-Public Use
  Company Number: DE-ASTRAZENECA-2018SF06151

PATIENT
  Sex: Male
  Weight: .4 kg

DRUGS (12)
  1. IBUPROFEN. [Suspect]
     Active Substance: IBUPROFEN
     Indication: FOETAL EXPOSURE DURING PREGNANCY
     Dosage: FROM 0 TO 27 GESTATIONAL WEEK
     Route: 064
  2. LEVOTHYROXINE SODIUM. [Suspect]
     Active Substance: LEVOTHYROXINE SODIUM
     Indication: PRODUCT USED FOR UNKNOWN INDICATION
     Dosage: FROM 0 TO 27 GESTATIONAL WEEK
     Route: 064
  3. IBUPROFEN. [Suspect]
     Active Substance: IBUPROFEN
     Indication: PRODUCT USED FOR UNKNOWN INDICATION
     Dosage: FROM 0 TO 27 GESTATIONAL WEEK
     Route: 064
  4. PARACETAMOL [Suspect]
     Active Substance: ACETAMINOPHEN
     Indication: PRODUCT USED FOR UNKNOWN INDICATION
     Dosage: FROM 0 TO 4 GESTATIONAL WEEK
     Route: 064
  5. LEVOTHYROXINE SODIUM. [Suspect]
     Active Substance: LEVOTHYROXINE SODIUM
     Indication: FOETAL EXPOSURE DURING PREGNANCY
     Dosage: FROM 0 TO 27 GESTATIONAL WEEK
     Route: 064
  6. OMEPRAZOLE. [Suspect]
     Active Substance: OMEPRAZOLE
     Indication: FOETAL EXPOSURE DURING PREGNANCY
     Dosage: FROM 0 TO 4 GESTATIONAL WEEK
     Route: 064
  7. DICLOFENAC SODIUM. [Suspect]
     Active Substance: DICLOFENAC SODIUM
     Indication: FOETAL EXPOSURE DURING PREGNANCY
     Dosage: FROM 0 TO 27 GESTATIONAL WEEK + 1 PRO RE NATA
     Route: 064
  8. DICLOFENAC SODIUM. [Suspect]
     Active Substance: DICLOFENAC SODIUM
     Indication: PAIN
     Dosage: FROM 0 TO 27 GESTATIONAL WEEK + 1 PRO RE NATA
     Route: 064
  9. PARACETAMOL [Suspect]
     Active Substance: ACETAMINOPHEN
     Indication: FOETAL EXPOSURE DURING PREGNANCY
     Dosage: FROM 0 TO 4 GESTATIONAL WEEK
     Route: 064
  10. LYNESTRENOL [Suspect]
     Active Substance: LYNESTRENOL
     Indication: PRODUCT USED FOR UNKNOWN INDICATION
     Dosage: FROM 0 TO 4 GESTATIONAL WEEK
     Route: 064
  11. OMEPRAZOLE. [Suspect]
     Active Substance: OMEPRAZOLE
     Indication: FOETAL EXPOSURE DURING PREGNANCY
     Dosage: FROM 0 TO 4 GESTATIONAL WEEK
     Route: 064
  12. LYNESTRENOL [Suspect]
     Active Substance: LYNESTRENOL
     Indication: FOETAL EXPOSURE DURING PREGNANCY
     Dosage: FROM 0 TO 4 GESTATIONAL WEEK
     Route: 064

REACTIONS (7)
  - Macrocephaly [Unknown]
  - Cerebral atrophy congenital [Unknown]
  - Splenomegaly [Unknown]
  - Atrial septal defect [Unknown]
  - Pupils unequal [Unknown]
  - Foetal exposure during pregnancy [Unknown]
  - Pyloric stenosis [Unknown]
